FAERS Safety Report 5598173-0 (Version None)
Quarter: 2008Q1

REPORT INFORMATION
  Report Type: 
  Country: None (occurrence: None)
  Receive Date: 20080117
  Receipt Date: 20080117
  Transmission Date: 20080703
  Serious: Yes (Hospitalization)
  Sender: FDA-Public Use
  Company Number: None

PATIENT
  Age: 80 Year
  Sex: Male

DRUGS (2)
  1. WARFARIN SODIUM [Suspect]
     Indication: ATRIAL FIBRILLATION
     Dosage: 5MG  EVERY DAY  SQ
     Route: 058
     Dates: start: 20071207, end: 20071213
  2. SULFAMETHOXAZOLE AND TRIMETHOPRIM [Suspect]
     Indication: WOUND INFECTION
     Dosage: 800/160MG BID PO
     Route: 048
     Dates: start: 20071207, end: 20071213

REACTIONS (3)
  - DRUG INTERACTION [None]
  - INTERNATIONAL NORMALISED RATIO INCREASED [None]
  - THERAPEUTIC AGENT TOXICITY [None]
